FAERS Safety Report 6348593-1 (Version None)
Quarter: 2009Q3

REPORT INFORMATION
  Report Type: 
  Country: None (occurrence: None)
  Receive Date: 20090911
  Receipt Date: 20090828
  Transmission Date: 20100115
  Serious: Yes (Death)
  Sender: FDA-Public Use
  Company Number: NZ-ROCHE-653368

PATIENT
  Age: 42 Year
  Sex: Male
  Weight: 97 kg

DRUGS (4)
  1. XELODA [Suspect]
     Indication: COLORECTAL CANCER
     Route: 048
     Dates: start: 20090813, end: 20090816
  2. ELOXATIN [Concomitant]
     Indication: COLORECTAL CANCER
     Dosage: FREQUENCY REPORTED AS X1
     Route: 042
     Dates: start: 20090813
  3. DEXAMETHASONE [Concomitant]
     Indication: ANTIEMETIC SUPPORTIVE CARE
     Dates: start: 20090413
  4. ZOFRAN [Concomitant]
     Indication: ANTIEMETIC SUPPORTIVE CARE
     Dates: start: 20090813

REACTIONS (1)
  - SUDDEN CARDIAC DEATH [None]
